FAERS Safety Report 8816689 (Version 1)
Quarter: 2012Q4

REPORT INFORMATION
  Report Type: Spontaneous
  Country: US (occurrence: None)
  Receive Date: 20120928
  Receipt Date: 20120928
  Transmission Date: 20130627
  Serious: Yes (Other)
  Sender: FDA-Public Use
  Company Number: 2012-003407

PATIENT
  Age: 44 Year
  Sex: Female

DRUGS (4)
  1. ACTONEL (RISEDRONATE SODIUM) TABLET, 35MG [Suspect]
     Indication: OSTEOPOROSIS
     Route: 048
     Dates: start: 2005, end: 2009
  2. GABAPENTIN [Concomitant]
  3. RANITIDINE [Concomitant]
  4. CALCIUM PLUS VITAMIN D (CALCIUM, COLECALCIFEROL) [Concomitant]

REACTIONS (9)
  - Femur fracture [None]
  - Fracture nonunion [None]
  - Atypical femur fracture [None]
  - Stress fracture [None]
  - Procedural pain [None]
  - Muscular weakness [None]
  - Arthralgia [None]
  - Gait disturbance [None]
  - Limb deformity [None]
